FAERS Safety Report 5299997-X (Version None)
Quarter: 2007Q2

REPORT INFORMATION
  Report Type: 
  Country: None (occurrence: None)
  Receive Date: 20070410
  Receipt Date: 20070327
  Transmission Date: 20071010
  Serious: Yes (Life-Threatening, Hospitalization)
  Sender: FDA-Public Use
  Company Number: B0463898A

PATIENT
  Age: 70 Year
  Sex: Female

DRUGS (5)
  1. VALTREX [Suspect]
     Indication: HERPES ZOSTER
     Dosage: 1000 MG / THREE TIMES PER DAY / ORAL
     Route: 048
     Dates: start: 20070301, end: 20070325
  2. LOXOPROFEN [Concomitant]
  3. MECOBALAMIN [Concomitant]
  4. RYTHMODAN [Concomitant]
  5. NILVADIPINE [Concomitant]

REACTIONS (3)
  - DISSEMINATED INTRAVASCULAR COAGULATION [None]
  - LIVER DISORDER [None]
  - RENAL DISORDER [None]
